FAERS Safety Report 8535975 (Version 3)
Quarter: 2013Q2

REPORT INFORMATION
  Report Type: Spontaneous
  Country: CA (occurrence: CA)
  Receive Date: 20120430
  Receipt Date: 20130517
  Transmission Date: 20140414
  Serious: Yes (Other)
  Sender: FDA-Public Use
  Company Number: CA-JNJFOC-20120410090

PATIENT
  Age: 64 Year
  Sex: Male
  Weight: 87 kg

DRUGS (2)
  1. REMICADE [Suspect]
     Indication: COLITIS ULCERATIVE
     Dosage: TOTAL NUMBER OF INFUSIONS: 14
     Route: 042
     Dates: start: 20110727
  2. MEZAVANT [Concomitant]
     Route: 048

REACTIONS (1)
  - Basal cell carcinoma [Recovered/Resolved]
